FAERS Safety Report 9688936 (Version 2)
Quarter: 2013Q4

REPORT INFORMATION
  Report Type: Spontaneous
  Country: JO (occurrence: JO)
  Receive Date: 20131114
  Receipt Date: 20131121
  Transmission Date: 20140711
  Serious: Yes (Hospitalization)
  Sender: FDA-Public Use
  Company Number: PHHY2013JO127965

PATIENT
  Age: 31 Year
  Sex: Male

DRUGS (2)
  1. WARFARIN [Suspect]
     Indication: ANTICOAGULANT THERAPY
  2. HEPARIN LMW [Suspect]
     Indication: ANTICOAGULANT THERAPY

REACTIONS (2)
  - Respiratory distress [Recovered/Resolved]
  - Haemoptysis [Recovered/Resolved]
